FAERS Safety Report 20121441 (Version 1)
Quarter: 2021Q4

REPORT INFORMATION
  Report Type: Spontaneous
  Country: US (occurrence: None)
  Receive Date: 20211126
  Receipt Date: 20211126
  Transmission Date: 20220303
  Serious: Yes (Hospitalization)
  Sender: FDA-Public Use
  Company Number: None

PATIENT
  Age: 4 Year
  Sex: Male

DRUGS (1)
  1. PULMOZYME [Suspect]
     Active Substance: DORNASE ALFA
     Indication: Cystic fibrosis
     Dosage: OTHER QUANTITY : 2.5MG/2.5ML ;?FREQUENCY : DAILY;?
     Route: 055
     Dates: start: 20180419

REACTIONS (2)
  - Pneumonia [None]
  - Sputum retention [None]

NARRATIVE: CASE EVENT DATE: 20211115
